FAERS Safety Report 11581567 (Version 1)
Quarter: 2015Q4

REPORT INFORMATION
  Report Type: Spontaneous
  Country: US (occurrence: US)
  Receive Date: 20151001
  Receipt Date: 20151001
  Transmission Date: 20160304
  Serious: Yes (Other)
  Sender: FDA-Public Use
  Company Number: US-ROCHE-684627

PATIENT
  Age: 55 Year
  Sex: Female

DRUGS (6)
  1. RIBASPHERE [Suspect]
     Active Substance: RIBAVIRIN
     Indication: HEPATITIS C
     Route: 065
  2. OXYCODONE [Suspect]
     Active Substance: OXYCODONE
     Indication: PRODUCT USED FOR UNKNOWN INDICATION
     Route: 065
  3. RIBASPHERE RIBAPAK [Suspect]
     Active Substance: RIBAVIRIN
     Indication: HEPATITIS C
     Route: 065
  4. PEGASYS [Suspect]
     Active Substance: PEGINTERFERON ALFA-2A
     Indication: HEPATITIS C
     Dosage: PRE-FILLED SYRINGE
     Route: 058
  5. ZOLOFT [Concomitant]
     Active Substance: SERTRALINE HYDROCHLORIDE
     Route: 065
  6. METHADONE [Concomitant]
     Active Substance: METHADONE HYDROCHLORIDE
     Route: 065

REACTIONS (18)
  - Influenza like illness [Unknown]
  - Memory impairment [Not Recovered/Not Resolved]
  - Haematocrit decreased [Unknown]
  - Weight decreased [Not Recovered/Not Resolved]
  - Dyspnoea [Unknown]
  - Pruritus [Unknown]
  - Blood iron decreased [Not Recovered/Not Resolved]
  - Drug dependence [Unknown]
  - Nausea [Not Recovered/Not Resolved]
  - Dermatitis [Unknown]
  - Fatigue [Not Recovered/Not Resolved]
  - Throat tightness [Unknown]
  - Dysgeusia [Not Recovered/Not Resolved]
  - Ichthyosis [Not Recovered/Not Resolved]
  - Hypersensitivity [Unknown]
  - Rash [Unknown]
  - Dysphonia [Unknown]
  - Back pain [Unknown]

NARRATIVE: CASE EVENT DATE: 20100205
